FAERS Safety Report 4876866-8 (Version None)
Quarter: 2006Q1

REPORT INFORMATION
  Report Type: 
  Country: None (occurrence: None)
  Receive Date: 20060109
  Receipt Date: 20060109
  Transmission Date: 20060701
  Serious: Yes (Hospitalization)
  Sender: FDA-Public Use
  Company Number: None

PATIENT
  Age: 61 Year
  Sex: Male
  Weight: 101.1521 kg

DRUGS (1)
  1. TERAZOSIN 5 MG [Suspect]
     Indication: DYSURIA
     Dosage: 5 MG QHS PO
     Route: 048
     Dates: start: 20051227, end: 20051227

REACTIONS (1)
  - SYNCOPE [None]
